FAERS Safety Report 9785256 (Version 1)
Quarter: 2013Q4

REPORT INFORMATION
  Report Type: Spontaneous
  Country: US (occurrence: None)
  Receive Date: 20131224
  Receipt Date: 20131224
  Transmission Date: 20140711
  Serious: Yes (Other)
  Sender: FDA-Public Use
  Company Number: 2013AP010708

PATIENT
  Age: 56 Year
  Sex: Female

DRUGS (3)
  1. ACYCLOVIR [Suspect]
     Indication: ORAL HERPES
     Route: 048
     Dates: start: 20131212, end: 20131213
  2. AMITRIPTYLINE [Concomitant]
  3. ZOLPIDEM [Concomitant]

REACTIONS (5)
  - Hypersensitivity [None]
  - Nausea [None]
  - Syncope [None]
  - Loss of consciousness [None]
  - Diarrhoea [None]
